FAERS Safety Report 7455584-6 (Version None)
Quarter: 2011Q2

REPORT INFORMATION
  Report Type: 
  Country: None (occurrence: None)
  Receive Date: 20110503
  Receipt Date: 20110418
  Transmission Date: 20111010
  Serious: Yes (Death)
  Sender: FDA-Public Use
  Company Number: DE-ROCHE-773452

PATIENT
  Age: 65 Year
  Sex: Female
  Weight: 92 kg

DRUGS (2)
  1. IRINOTECAN [Concomitant]
     Dates: start: 20101004, end: 20110103
  2. BEVACIZUMAB [Suspect]
     Route: 065
     Dates: start: 20101004, end: 20110103

REACTIONS (2)
  - NO THERAPEUTIC RESPONSE [None]
  - NEOPLASM MALIGNANT [None]
